FAERS Safety Report 19424758 (Version 1)
Quarter: 2021Q2

REPORT INFORMATION
  Report Type: Spontaneous
  Country: US (occurrence: US)
  Receive Date: 20210616
  Receipt Date: 20210616
  Transmission Date: 20210717
  Serious: No
  Sender: FDA-Public Use
  Company Number: US-SK LIFE SCIENCE, INC-SKPVG-2020-000733

PATIENT

DRUGS (11)
  1. XCOPRI [Suspect]
     Active Substance: CENOBAMATE
     Dosage: 200 MILLIGRAM, QD
     Route: 048
     Dates: start: 20201217
  2. FLONASE                            /00908302/ [Concomitant]
     Active Substance: MOMETASONE FUROATE
     Indication: PRODUCT USED FOR UNKNOWN INDICATION
     Dosage: UNK, BID, GENERIC
     Route: 065
  3. DELSYM [Concomitant]
     Active Substance: DEXTROMETHORPHAN
     Indication: COUGH
     Dosage: UNK, PRN IN THE WINTER TIME
     Route: 065
  4. XCOPRI [Suspect]
     Active Substance: CENOBAMATE
     Indication: SEIZURE
     Dosage: 100 MILLIGRAM, QD
     Route: 048
     Dates: start: 20201114, end: 20201127
  5. GAS?X [Concomitant]
     Active Substance: DIMETHICONE
     Indication: PRODUCT USED FOR UNKNOWN INDICATION
     Route: 065
  6. ALLEGRA [Concomitant]
     Active Substance: FEXOFENADINE HYDROCHLORIDE
     Indication: PRODUCT USED FOR UNKNOWN INDICATION
     Dosage: GENERIC
     Route: 065
  7. APTIOM [Suspect]
     Active Substance: ESLICARBAZEPINE ACETATE
     Indication: SEIZURE
     Dosage: 800 MILLIGRAM, QD
     Route: 065
  8. LORAZEPAM. [Suspect]
     Active Substance: LORAZEPAM
     Indication: PRODUCT USED FOR UNKNOWN INDICATION
     Dosage: UNK, PRN
     Route: 065
  9. LAMICTAL [Suspect]
     Active Substance: LAMOTRIGINE
     Dosage: 75 MILLIGRAM, QD, PM
     Route: 065
  10. CALCIUM [Concomitant]
     Active Substance: CALCIUM
     Indication: PRODUCT USED FOR UNKNOWN INDICATION
     Dosage: UNK, BID, CHEWABLE
     Route: 065
  11. LAMICTAL [Suspect]
     Active Substance: LAMOTRIGINE
     Indication: SEIZURE
     Dosage: 150 MILLIGRAM, QD, AM
     Route: 065

REACTIONS (4)
  - Tremor [Recovered/Resolved]
  - Lacrimation increased [Recovered/Resolved]
  - Product dose omission issue [Recovered/Resolved]
  - Pain in extremity [Recovered/Resolved]

NARRATIVE: CASE EVENT DATE: 20201128
